FAERS Safety Report 14999772 (Version 1)
Quarter: 2018Q2

REPORT INFORMATION
  Report Type: Spontaneous
  Country: FR (occurrence: FR)
  Receive Date: 20180612
  Receipt Date: 20180612
  Transmission Date: 20180711
  Serious: Yes (Hospitalization)
  Sender: FDA-Public Use
  Company Number: PHHY2018FR019797

PATIENT
  Age: 79 Year
  Sex: Female

DRUGS (6)
  1. ASPIRINE [Concomitant]
     Active Substance: ASPIRIN
     Indication: PRODUCT USED FOR UNKNOWN INDICATION
     Dosage: UNK
     Route: 065
  2. AMOXICILLINE-ACIDE CLAVULANIQUE [Suspect]
     Active Substance: AMOXICILLIN\CLAVULANIC ACID
     Indication: PNEUMONIA
     Dosage: 6 DF(UG/L), QD
     Route: 065
     Dates: start: 20180111, end: 20180121
  3. LODOZ [Concomitant]
     Active Substance: BISOPROLOL FUMARATE\HYDROCHLOROTHIAZIDE
     Indication: MITRAL VALVE DISEASE
     Dosage: UNK
     Route: 065
  4. PREVISCAN (FLUINDIONE) [Concomitant]
     Active Substance: FLUINDIONE
     Indication: MITRAL VALVE DISEASE
     Dosage: UNK
     Route: 065
  5. PARIET [Concomitant]
     Active Substance: RABEPRAZOLE SODIUM
     Indication: PRODUCT USED FOR UNKNOWN INDICATION
     Dosage: UNK
     Route: 065
  6. TRIATEC [Concomitant]
     Indication: MITRAL VALVE DISEASE
     Dosage: UNK
     Route: 065

REACTIONS (11)
  - Decreased appetite [Unknown]
  - Pain in extremity [Not Recovered/Not Resolved]
  - Haematoma [Recovering/Resolving]
  - Product substitution issue [Not Recovered/Not Resolved]
  - Vomiting [Recovered/Resolved]
  - Nausea [Unknown]
  - Medication error [Not Recovered/Not Resolved]
  - International normalised ratio increased [Unknown]
  - Gait disturbance [Not Recovered/Not Resolved]
  - Peripheral coldness [Unknown]
  - Labelled drug-drug interaction medication error [Not Recovered/Not Resolved]

NARRATIVE: CASE EVENT DATE: 20180111
